FAERS Safety Report 4344246-X (Version None)
Quarter: 2004Q2

REPORT INFORMATION
  Report Type: 
  Country: None (occurrence: None)
  Receive Date: 20040419
  Receipt Date: 20040402
  Transmission Date: 20050107
  Serious: No
  Sender: FDA-Public Use
  Company Number: B0329471A

PATIENT
  Sex: 0

DRUGS (4)
  1. ALKERAN [Suspect]
     Indication: BONE MARROW TRANSPLANT
     Dosage: 20 MG/KG
  2. WHOLE BLOOD [Concomitant]
  3. PLATELETS [Concomitant]
  4. INOTROPE [Concomitant]

REACTIONS (5)
  - ASCITES [None]
  - HEPATIC VEIN OCCLUSION [None]
  - HEPATOMEGALY [None]
  - RESPIRATORY DISORDER [None]
  - WEIGHT INCREASED [None]
